FAERS Safety Report 6013737-8 (Version None)
Quarter: 2008Q4

REPORT INFORMATION
  Report Type: 
  Country: None (occurrence: None)
  Receive Date: 20081219
  Receipt Date: 20081209
  Transmission Date: 20090506
  Serious: Yes (Life-Threatening, Hospitalization, Other)
  Sender: FDA-Public Use
  Company Number: B0544821A

PATIENT
  Age: 66 Year
  Sex: Male
  Weight: 80 kg

DRUGS (4)
  1. TRIZIVIR [Suspect]
     Indication: HIV INFECTION
     Dosage: 1TAB TWICE PER DAY
     Route: 048
     Dates: start: 20010327
  2. LEXOMIL [Concomitant]
     Dosage: 3MG PER DAY
     Route: 048
     Dates: start: 20060418
  3. HEXAQUINE [Concomitant]
     Dosage: 1TAB THREE TIMES PER DAY
     Route: 048
     Dates: start: 20070928
  4. CACIT VIT D3 [Concomitant]
     Route: 048
     Dates: start: 20070928

REACTIONS (8)
  - ACUTE CORONARY SYNDROME [None]
  - ARTERIOSCLEROSIS [None]
  - BUNDLE BRANCH BLOCK RIGHT [None]
  - CARDIAC ENZYMES INCREASED [None]
  - CARDIOMEGALY [None]
  - CHEST PAIN [None]
  - DYSPNOEA [None]
  - EJECTION FRACTION DECREASED [None]
